FAERS Safety Report 5822682-X (Version None)
Quarter: 2008Q3

REPORT INFORMATION
  Report Type: 
  Country: None (occurrence: None)
  Receive Date: 20080725
  Receipt Date: 20080723
  Transmission Date: 20090109
  Serious: Yes (Hospitalization, Other)
  Sender: FDA-Public Use
  Company Number: DE-BRISTOL-MYERS SQUIBB COMPANY-12844718

PATIENT
  Age: 28 Year
  Sex: Female
  Weight: 82 kg

DRUGS (5)
  1. TAXOL [Suspect]
     Indication: BREAST CANCER
     Dosage: DOSE:  225 MG/M2
     Route: 042
     Dates: start: 20041231, end: 20041231
  2. CYCLOPHOSPHAMIDE [Suspect]
  3. EPIRUBICIN [Suspect]
  4. DARBEPOETIN ALFA [Suspect]
     Indication: ANAEMIA
     Route: 058
     Dates: start: 20041022, end: 20050114
  5. NEULASTA [Concomitant]
     Route: 058
     Dates: start: 20041023

REACTIONS (4)
  - AXILLARY VEIN THROMBOSIS [None]
  - JUGULAR VEIN THROMBOSIS [None]
  - SUBCLAVIAN VEIN THROMBOSIS [None]
  - THROMBOPHLEBITIS [None]
